FAERS Safety Report 23784700 (Version 6)
Quarter: 2024Q4

REPORT INFORMATION
  Report Type: Spontaneous
  Country: CA (occurrence: CA)
  Receive Date: 20240425
  Receipt Date: 20241204
  Transmission Date: 20250115
  Serious: Yes (Other)
  Sender: BAXTER
  Company Number: CA-BAXTER-2024BAX017146

PATIENT
  Age: 41 Year
  Sex: Female

DRUGS (430)
  1. ACETAMINOPHEN [Suspect]
     Active Substance: ACETAMINOPHEN
     Indication: Product used for unknown indication
     Dosage: AT AN UNSPECIFIED DOSE AND FREQUENCY (DOSAGE FORM: NOT SPECIFIED)
     Route: 065
  2. ACETAMINOPHEN [Suspect]
     Active Substance: ACETAMINOPHEN
     Dosage: 10 MILIGRAM AT AN UNSPECIFIED FREQUENCY (DOSAGE FORM: NOT SPECIFIED)
     Route: 065
  3. FLUCONAZOLE [Suspect]
     Active Substance: FLUCONAZOLE
     Indication: Migraine
     Dosage: 1 DOSAGE FORM, AT AN UNSPECIFIED FREQUENCY (DOSAGE FORM: NOT SPECIFIED)
     Route: 065
  4. FLUCONAZOLE [Suspect]
     Active Substance: FLUCONAZOLE
     Dosage: AT AN UNSPECIFIED DOSE AND FREQUENCY
     Route: 065
  5. FLUCONAZOLE [Suspect]
     Active Substance: FLUCONAZOLE
     Dosage: 40 MILLIGRAM AT AN UNSPECIFIED FREQUENCY
     Route: 065
  6. FLUCONAZOLE [Suspect]
     Active Substance: FLUCONAZOLE
     Dosage: 1 DOSAGE FORMS 1 EVERY 24 HOURS
     Route: 065
  7. FLUCONAZOLE [Suspect]
     Active Substance: FLUCONAZOLE
     Dosage: 1 DOSAGE FORM 1 EVERY 24 HOURS
     Route: 065
  8. METOCLOPRAMIDE [Suspect]
     Active Substance: METOCLOPRAMIDE
     Indication: Migraine
     Dosage: 5 MILLIGRAMS, UNSPECIFIED FREQUENCY
     Route: 065
  9. METOCLOPRAMIDE [Suspect]
     Active Substance: METOCLOPRAMIDE
     Dosage: 2 DOSAGE FORMS, UNSPECIFIED FREQUENCY
     Route: 065
  10. METOCLOPRAMIDE [Suspect]
     Active Substance: METOCLOPRAMIDE
     Dosage: 1 DOSAGE FORMS, UNSPECIFIED FREQUENCY
     Route: 065
  11. METOCLOPRAMIDE [Suspect]
     Active Substance: METOCLOPRAMIDE
     Dosage: 10 MILLIGRAMS, UNSPECIFIED FREQUENCY
     Route: 065
  12. AMOXICILLIN [Suspect]
     Active Substance: AMOXICILLIN
     Indication: Product used for unknown indication
     Dosage: AT AN UNSPECIFIED DOSE AND FREQUENCY (DOSAGE FORM: NOT SPECIFIED)
     Route: 065
  13. AMOXICILLIN [Suspect]
     Active Substance: AMOXICILLIN
     Dosage: 2 DOSAGE FORMS, 1 EVERY 8 HOURS (DOSAGE FORM: NOT SPECIFIED)
     Route: 065
  14. AMOXICILLIN [Suspect]
     Active Substance: AMOXICILLIN
     Dosage: 6 DOSAGE FORMS 1 EVERY 1 DAY (DOSAGE FORM: NOT SPECIFIED)
     Route: 065
  15. AMOXICILLIN [Suspect]
     Active Substance: AMOXICILLIN
     Dosage: 2 DOSAGE FORM 1 EVERY 24 HOURS
     Route: 065
  16. AMOXICILLIN [Suspect]
     Active Substance: AMOXICILLIN
     Dosage: 6 DOSAGE FORM 1 EVERY 24 HOURS
     Route: 065
  17. AMOXICILLIN [Suspect]
     Active Substance: AMOXICILLIN
     Dosage: 2 DOSAGE FORM 3 EVERY 1 DAYS
     Route: 065
  18. AMOXICILLIN [Suspect]
     Active Substance: AMOXICILLIN
     Dosage: 2 DOSAGE FORM AT AN UNSPECIFIED FREQUENCY
     Route: 065
  19. AMOXICILLIN [Suspect]
     Active Substance: AMOXICILLIN
     Dosage: 2 DOSAGE FORM 1 EVERY 24 HOURS
     Route: 065
  20. AMOXICILLIN [Suspect]
     Active Substance: AMOXICILLIN
     Dosage: 6 DOSAGE FORM 1 EVERY 24 HOURS
     Route: 065
  21. AMOXICILLIN [Suspect]
     Active Substance: AMOXICILLIN
     Dosage: 2 DOSAGE FORM 3 EVERY 1 DAYS
     Route: 065
  22. AMOXICILLIN [Suspect]
     Active Substance: AMOXICILLIN
     Dosage: THERAPY DURATION : 1 DAYS
     Route: 065
  23. AMOXICILLIN [Suspect]
     Active Substance: AMOXICILLIN
     Dosage: 2 DOSAGE FORM AT AN UNSPECIFIED FREQUENCY
     Route: 065
  24. BOTULINUM TOXIN TYPE A [Suspect]
     Active Substance: BOTULINUM TOXIN TYPE A
     Indication: Product used for unknown indication
     Dosage: AT AN UNSPECIFIED DOSE AND FREQUENCY (DOSAGE FORM: POWDER FOR SOLUTION)
     Route: 030
  25. BOTULINUM TOXIN TYPE A [Suspect]
     Active Substance: BOTULINUM TOXIN TYPE A
     Dosage: 200 IU (INTERNATIONAL UNITS) (DOSAGE FORM: POWDER FOR SOLUTION)
     Route: 065
  26. BOTULINUM TOXIN TYPE A [Suspect]
     Active Substance: BOTULINUM TOXIN TYPE A
     Dosage: 200 IU (INTERNATIONAL UNITS) (DOSAGE FORM: POWDER FOR SOLUTION)
     Route: 065
  27. BOTULINUM TOXIN TYPE A [Suspect]
     Active Substance: BOTULINUM TOXIN TYPE A
     Dosage: 200 IU (INTERNATIONAL UNITS) (DOSAGE FORM: POWDER FOR SOLUTION)
     Route: 030
  28. BOTULINUM TOXIN TYPE A [Suspect]
     Active Substance: BOTULINUM TOXIN TYPE A
     Dosage: (THERAPY DURATION: 1460 DAYS) (DOSAGE FORM: POWDER FOR SOLUTION)
     Route: 065
  29. BOTULINUM TOXIN TYPE A [Suspect]
     Active Substance: BOTULINUM TOXIN TYPE A
     Dosage: 200 IU (INTERNATIONAL UNITS) (THERAPY DURATION: 1460 DAYS) (DOSAGE FORM: POWDER FOR SOLUTION)
     Route: 065
  30. BOTULINUM TOXIN TYPE A [Suspect]
     Active Substance: BOTULINUM TOXIN TYPE A
     Dosage: THERAPY DURATION: 1460 DAYS (DOSAGE FORM: POWDER FOR SOLUTION FOR INJECTION)
     Route: 065
  31. BOTULINUM TOXIN TYPE A [Suspect]
     Active Substance: BOTULINUM TOXIN TYPE A
     Dosage: UNK
     Route: 065
  32. CIPROFLOXACIN [Suspect]
     Active Substance: CIPROFLOXACIN
     Indication: Migraine
     Dosage: 500 MILLIGRAMS, AT AN UNSPECIFIED FREQUENCY (DOSAGE FORM: NOT SPECIFIED)
     Route: 065
  33. CIPROFLOXACIN [Suspect]
     Active Substance: CIPROFLOXACIN
     Dosage: 1 DOSAGE FORM, 2 EVERY 1 DAYS (DOSAGE FORM: NOT SPECIFIED)
     Route: 065
  34. CIPROFLOXACIN [Suspect]
     Active Substance: CIPROFLOXACIN
     Dosage: 1 DOSAGE FORMS 1 EVERY 12 HOURS
     Route: 065
  35. CIPROFLOXACIN [Suspect]
     Active Substance: CIPROFLOXACIN
     Indication: Migraine
     Dosage: 2 DOSAGE FORMS, 1 EVERY 1 DAYS
     Route: 048
  36. CIPROFLOXACIN [Suspect]
     Active Substance: CIPROFLOXACIN
     Dosage: 500 MILLIGRAMS, 1 EVERY 1 DAYS
     Route: 048
  37. CIPROFLOXACIN [Suspect]
     Active Substance: CIPROFLOXACIN
     Dosage: 1 DOSAGE FORM, 2 EVERY 1 DAYS
     Route: 048
  38. CIPROFLOXACIN [Suspect]
     Active Substance: CIPROFLOXACIN
     Dosage: 2 DOSAGE FORMS, 2 EVERY 1 DAYS
     Route: 048
  39. CIPROFLOXACIN [Suspect]
     Active Substance: CIPROFLOXACIN
     Dosage: 1 DOSAGE FORMS, 1 EVERY 1 DAYS
     Route: 048
  40. CLARITHROMYCIN [Suspect]
     Active Substance: CLARITHROMYCIN
     Indication: Product used for unknown indication
     Dosage: 1 DOSAGE FORM 2 EVERY 1 DAYS (DOSAGE FORM: NOT SPECIFIED)
     Route: 065
  41. CLARITHROMYCIN [Suspect]
     Active Substance: CLARITHROMYCIN
     Dosage: 1 DOSAGE FORM, 1 EVERY 12 HOURS (DOSAGE FORM: NOT SPECIFIED)
     Route: 065
  42. CLARITHROMYCIN [Suspect]
     Active Substance: CLARITHROMYCIN
     Dosage: 1 DOSAGE FORMS 1 EVERY 1 DAY (DOSAGE FORM: NOT SPECIFIED)
     Route: 065
  43. CLARITHROMYCIN [Suspect]
     Active Substance: CLARITHROMYCIN
     Dosage: 1 DOSAGE FORM, 1 EVERY 12 HOURS (DOSAGE FORM: NOT SPECIFIED)
     Route: 065
  44. CLARITHROMYCIN [Suspect]
     Active Substance: CLARITHROMYCIN
     Dosage: 2 DOSAGE FORM AT AN UNSPECIFIED FREQUENCY (DOSAGE FORM: NOT SPECIFIED)
     Route: 065
  45. CLARITHROMYCIN [Suspect]
     Active Substance: CLARITHROMYCIN
     Dosage: 2 DOSAGE FORM 1 EVERY 24 HOURS
     Route: 065
  46. CLARITHROMYCIN [Suspect]
     Active Substance: CLARITHROMYCIN
     Dosage: 1 DOSAGE FORM 1 EVERY 24 HOURS
     Route: 065
  47. CLARITHROMYCIN [Suspect]
     Active Substance: CLARITHROMYCIN
     Dosage: 1 DOSAGE FORM 1 EVERY 12 HOURS (THERAPY DURATION: 1 DAYS) (DOSAGE FORM : NOT SPECIFIED)
     Route: 065
  48. CODEINE [Suspect]
     Active Substance: CODEINE
     Indication: Migraine
     Dosage: AT AN UNSPECIFIED DOSE AND FREQUENCY
     Route: 065
  49. CODEINE [Suspect]
     Active Substance: CODEINE
     Dosage: AT AN UNSPECIFIED DOSE AND FREQUENCY
     Route: 065
  50. CODEINE [Suspect]
     Active Substance: CODEINE
     Dosage: 40 MILLIGRAM AT AN UNSPECIFIED FREQUENCY
     Route: 065
  51. DEXAMETHASONE [Suspect]
     Active Substance: DEXAMETHASONE
     Indication: Migraine
     Dosage: 2 MILLIGRAM, AT AN UNSPECIFIED FREQUENCY (DOSAGE FORM: NOT SPECIFIED)
     Route: 065
  52. DEXAMETHASONE [Suspect]
     Active Substance: DEXAMETHASONE
     Dosage: 1 DOSAGE FORM, 1 EVERY 1 DAY (DOSAGE FORM: NOT SPECIFIED)
     Route: 065
  53. DEXAMETHASONE [Suspect]
     Active Substance: DEXAMETHASONE
     Dosage: AT AN UNSPECIFIED DOSE AND FREQUENCY
     Route: 065
  54. DEXAMETHASONE [Suspect]
     Active Substance: DEXAMETHASONE
     Dosage: 1 DOSAGE FORMS AT AN UNSPECIFIED FREQUENCY
     Route: 065
  55. DEXAMETHASONE [Suspect]
     Active Substance: DEXAMETHASONE
     Dosage: AT AN UNSPECIFIED DOSE AND FREQUENCY (DOSAGE FORM: NOT SPECIFIED)
     Route: 065
  56. DEXAMETHASONE [Suspect]
     Active Substance: DEXAMETHASONE
     Dosage: 2 MILLIGRAM 1 EVERY 24 HOURS (THERAPY DURATION: 1 DAYS) (DOSAGE FORM : NOT SPECIFIED)
     Route: 065
  57. DEXAMETHASONE [Suspect]
     Active Substance: DEXAMETHASONE
     Dosage: 1 DOSAGE FORM 1 EVERY 24 HOURS (THERAPY DURATION: 1 DAYS)
     Route: 065
  58. DEXAMETHASONE [Suspect]
     Active Substance: DEXAMETHASONE
     Dosage: (THERAPY DURATION: 1 DAYS)
     Route: 065
  59. DEXAMETHASONE [Suspect]
     Active Substance: DEXAMETHASONE
     Dosage: 2 MILLIGRAM AT AN UNSPECIFIED FREQUENCY (DOSAGE FORM: ORAL LIQUID)
     Route: 065
  60. DEXAMETHASONE [Suspect]
     Active Substance: DEXAMETHASONE
     Dosage: 1 DOSAGE FORM 1 EVERY 24 HOURS (DOSAGE FORM: ORAL LIQUID)
     Route: 065
  61. DEXAMETHASONE [Suspect]
     Active Substance: DEXAMETHASONE
     Dosage: (DOSAGE FORM: ORAL LIQUID)
     Route: 065
  62. DEXAMETHASONE [Suspect]
     Active Substance: DEXAMETHASONE
     Dosage: 1 DOSAGE FORM AT AN UNSPECIFIED FREQUENCY
     Route: 065
  63. DEXAMETHASONE [Suspect]
     Active Substance: DEXAMETHASONE
     Dosage: 2 MILLIGRAM 1 EVERY 24 HOURS (DOSAGE FORM: ORAL LIQUID)
     Route: 065
  64. DULOXETINE HYDROCHLORIDE [Suspect]
     Active Substance: DULOXETINE HYDROCHLORIDE
     Indication: Migraine
     Dosage: 60 MILLIGRAMS, AT AN UNSPECIFIED FREQUENCY (DOSAGE FORM: CAPSULE, DELAYED RELEASE)
     Route: 065
  65. DULOXETINE HYDROCHLORIDE [Suspect]
     Active Substance: DULOXETINE HYDROCHLORIDE
     Dosage: 60 MILLIGRAMS, AT AN UNSPECIFIED FREQUENCY
     Route: 048
  66. DULOXETINE HYDROCHLORIDE [Suspect]
     Active Substance: DULOXETINE HYDROCHLORIDE
     Dosage: AT AN UNSPECIFIED DOSE AND FREQUENCY (DOSAGE FORM: CAPSULE, DELAYED RELEASE)
     Route: 048
  67. DULOXETINE HYDROCHLORIDE [Suspect]
     Active Substance: DULOXETINE HYDROCHLORIDE
     Dosage: UNK
     Route: 065
  68. ESCITALOPRAM [Suspect]
     Active Substance: ESCITALOPRAM OXALATE
     Indication: Migraine
     Dosage: 10 MILLIGRAMS, AT AN UNSPECIFIED FREQUENCY
     Route: 065
  69. ESOMEPRAZOLE [Suspect]
     Active Substance: ESOMEPRAZOLE
     Indication: Migraine
     Dosage: 40 MILLIGRAMS, AT AN UNSPECIFIED FREQUENCY (DOSAGE FORM: NOT SPECIFIED)
     Route: 065
  70. ESOMEPRAZOLE [Suspect]
     Active Substance: ESOMEPRAZOLE
     Dosage: AT AN UNSPECIFIED DOSE AND FREQUENCY (DOSAGE FORM: NOT SPECIFIED)
     Route: 065
  71. HYDROMORPHONE [Suspect]
     Active Substance: HYDROMORPHONE
     Indication: Migraine
     Dosage: 1 DOSAGE FORM, 2 EVERY 1 DAY (DOSAGE FORM: NOT SPECIFIED)
     Route: 065
  72. HYDROMORPHONE [Suspect]
     Active Substance: HYDROMORPHONE
     Dosage: AT AN UNSPECIFIED DOSE AND FREQUENCY (DOSAGE FORM: NOT SPECIFIED)
     Route: 065
  73. HYDROMORPHONE [Suspect]
     Active Substance: HYDROMORPHONE
     Dosage: 1 DOSAGE FORMS 1 EVERY 12 HOURS
     Route: 065
  74. HYDROMORPHONE [Suspect]
     Active Substance: HYDROMORPHONE
     Dosage: 2 DOSAGE FORM 1 EVERY 24 HOURS
     Route: 065
  75. HYDROMORPHONE [Suspect]
     Active Substance: HYDROMORPHONE
     Dosage: 1 DOSAGE FORM 1 EVERY 12 HOURS (THERAPY DURATION: 2 DAYS)
     Route: 065
  76. HYDROMORPHONE [Suspect]
     Active Substance: HYDROMORPHONE
     Dosage: 1 DOSAGE FORM AT AN UNSPECIFIED FREQUENCY (THERAPY DURATION: 2 DAYS) (DOSAGE FORM : NOT SPECIFIED)
     Route: 065
  77. BUTYLSCOPOLAMINE BROMIDE [Suspect]
     Active Substance: BUTYLSCOPOLAMINE BROMIDE
     Indication: Migraine
     Dosage: 10 MILLIGRAMS, AT AN UNSPECIFIED FREQUENCY
     Route: 065
  78. BUTYLSCOPOLAMINE BROMIDE [Suspect]
     Active Substance: BUTYLSCOPOLAMINE BROMIDE
     Dosage: 1 DOSAGE FORM, AT AN UNSPECIFIED FREQUENCY
     Route: 065
  79. BUTYLSCOPOLAMINE BROMIDE [Suspect]
     Active Substance: BUTYLSCOPOLAMINE BROMIDE
     Dosage: UNK
     Route: 065
  80. BUTYLSCOPOLAMINE BROMIDE [Suspect]
     Active Substance: BUTYLSCOPOLAMINE BROMIDE
     Dosage: 2 DOSAGE FORM 1 EVERY 24 HOURS
     Route: 065
  81. BUTYLSCOPOLAMINE BROMIDE [Suspect]
     Active Substance: BUTYLSCOPOLAMINE BROMIDE
     Dosage: 1 DOSAGE FORM AT AN UNSPECIFIED FREQUENCY
     Route: 065
  82. BUTYLSCOPOLAMINE BROMIDE [Suspect]
     Active Substance: BUTYLSCOPOLAMINE BROMIDE
     Dosage: 1 DOSAGE FORM 2 EVERY 1 DAYS
     Route: 065
  83. BUTYLSCOPOLAMINE BROMIDE [Suspect]
     Active Substance: BUTYLSCOPOLAMINE BROMIDE
     Dosage: 10 MILLIGRAM AT AN UNSPECIFIED FREQUENCY
     Route: 065
  84. INDOMETHACIN [Suspect]
     Active Substance: INDOMETHACIN
     Indication: Migraine
     Dosage: 1 DOSAGE FORM, 2 EVERY 1 DAYS (DOSAGE FORM: NOT SPECIFIED)
     Route: 065
  85. INDOMETHACIN [Suspect]
     Active Substance: INDOMETHACIN
     Dosage: 1 DOSAGE FORM 2 EVERY 1 DAYS (DOSAGE FORM: NOT SPECIFIED)
     Route: 065
  86. INDOMETHACIN [Suspect]
     Active Substance: INDOMETHACIN
     Dosage: 1 DOSAGE FORM 2 EVERY 1 DAYS (DOSAGE FORM: NOT SPECIFIED)
     Route: 065
  87. INDOMETHACIN [Suspect]
     Active Substance: INDOMETHACIN
     Dosage: 1 DOSAGE FORM 2 EVERY 1 DAYS (DOSAGE FORM: NOT SPECIFIED)
     Route: 065
  88. INDOMETHACIN [Suspect]
     Active Substance: INDOMETHACIN
     Dosage: 1 DOSAGE FORM 2 EVERY 1 DAYS (DOSAGE FORM: NOT SPECIFIED)
     Route: 065
  89. INDOMETHACIN [Suspect]
     Active Substance: INDOMETHACIN
     Dosage: 1 DOSAGE FORM 2 EVERY 1 DAYS (DOSAGE FORM: NOT SPECIFIED)
     Route: 065
  90. INDOMETHACIN [Suspect]
     Active Substance: INDOMETHACIN
     Dosage: 1 DOSAGE FORM 2 EVERY 1 DAYS (DOSAGE FORM: NOT SPECIFIED)
     Route: 065
  91. INDOMETHACIN [Suspect]
     Active Substance: INDOMETHACIN
     Dosage: 1 DOSAGE FORM 2 EVERY 1 DAYS (DOSAGE FORM: NOT SPECIFIED)
     Route: 065
  92. INDOMETHACIN [Suspect]
     Active Substance: INDOMETHACIN
     Dosage: 1 DOSAGE FORM 2 EVERY 1 DAYS (DOSAGE FORM: NOT SPECIFIED)
     Route: 065
  93. INDOMETHACIN [Suspect]
     Active Substance: INDOMETHACIN
     Dosage: 1 DOSAGE FORM 2 EVERY 1 DAYS (DOSAGE FORM: NOT SPECIFIED)
     Route: 065
  94. INDOMETHACIN [Suspect]
     Active Substance: INDOMETHACIN
     Dosage: 1 DOSAGE FORM 2 EVERY 1 DAYS (DOSAGE FORM: NOT SPECIFIED)
     Route: 065
  95. INDOMETHACIN [Suspect]
     Active Substance: INDOMETHACIN
     Dosage: 2 EVERY 1 DAYS (DOSAGE FORM: NOT SPECIFIED)
     Route: 065
  96. INDOMETHACIN [Suspect]
     Active Substance: INDOMETHACIN
     Dosage: 1 DOSAGE FORM 2 EVERY 1 DAYS (DOSAGE FORM: NOT SPECIFIED)
     Route: 065
  97. INDOMETHACIN [Suspect]
     Active Substance: INDOMETHACIN
     Dosage: 1 DOSAGE FORMS 1 EVERY 12 HOURS
     Route: 065
  98. INDOMETHACIN [Suspect]
     Active Substance: INDOMETHACIN
     Dosage: 2.0 DOGAE FORMS
     Route: 054
  99. LANSOPRAZOLE [Suspect]
     Active Substance: LANSOPRAZOLE
     Indication: Migraine
     Dosage: 30 MILLIGRAMS, AT AN UNSPECIFIED FREQUENCY (DOSAGE FORM: CAPSULE, DELAYED RELEASE)
     Route: 065
  100. LISINOPRIL [Suspect]
     Active Substance: LISINOPRIL
     Indication: Product used for unknown indication
     Dosage: UNK
     Route: 065
  101. LISINOPRIL [Suspect]
     Active Substance: LISINOPRIL
     Dosage: 1 DOSAGE FORM 1 EVERY 1 DAYS
     Route: 065
  102. LISINOPRIL [Suspect]
     Active Substance: LISINOPRIL
     Dosage: 2 DOSAGE FORM 1 EVERY 24 HOURS
     Route: 065
  103. LISINOPRIL [Suspect]
     Active Substance: LISINOPRIL
     Dosage: 1 DOSAGE FORMS 1 EVERY 24 HOURS
     Route: 065
  104. LISINOPRIL [Suspect]
     Active Substance: LISINOPRIL
     Dosage: 2 DOSAGE FORMS 1 EVERY 24 HOURS
     Route: 065
  105. METOCLOPRAMIDE [Suspect]
     Active Substance: METOCLOPRAMIDE
     Indication: Migraine
     Dosage: 5 MILLIGRAM, AT AN UNSPECIFIED FREQUENCY (DOSAGE FORM: NOT SPECIFIED)
     Route: 065
  106. METOCLOPRAMIDE [Suspect]
     Active Substance: METOCLOPRAMIDE
     Dosage: AT AN UNSPECIFIED DOSE AND FREQUENCY
     Route: 065
  107. METOCLOPRAMIDE [Suspect]
     Active Substance: METOCLOPRAMIDE
     Dosage: 10 MILLIGRAM, AT AN UNSPECIFIED FREQUENCY
     Route: 065
  108. MOMETASONE FUROATE [Suspect]
     Active Substance: MOMETASONE FUROATE
     Indication: Migraine
     Dosage: 2 DOSAGE FORMS 2 EVERY 1 DAY (DOSAGE FORM: NOT SPECIFIED)
     Route: 065
  109. MOMETASONE FUROATE [Suspect]
     Active Substance: MOMETASONE FUROATE
     Dosage: AT AN UNSPECIFIED DOSE AND FREQUENCY
     Route: 065
  110. MOMETASONE FUROATE [Suspect]
     Active Substance: MOMETASONE FUROATE
     Dosage: 2 DOSAGE FORMS, 1 EVERY 8 HOURS
     Route: 065
  111. MOMETASONE FUROATE [Suspect]
     Active Substance: MOMETASONE FUROATE
     Dosage: 2 DOSAGE FORMS 3 EVERY 1 DAY (DOSAGE FORM: NOT SPECIFIED)
     Route: 065
  112. MOMETASONE FUROATE [Suspect]
     Active Substance: MOMETASONE FUROATE
     Dosage: 6 DOSAGE FORMS, 1 EVERY 1 DAY (DOSAGE FORM: NOT SPECIFIED)
     Route: 065
  113. MOMETASONE FUROATE [Suspect]
     Active Substance: MOMETASONE FUROATE
     Dosage: 2 DOSAGE FORMS 1 EVERY 8 HOURS
     Route: 065
  114. MOMETASONE FUROATE [Suspect]
     Active Substance: MOMETASONE FUROATE
     Dosage: 6 DOSAGE FORM AT AN UNSPECIFIED FREQUENCY (DOSAGE FORM : NOT SPECIFIED)
     Route: 065
  115. PROPRANOLOL [Suspect]
     Active Substance: PROPRANOLOL HYDROCHLORIDE
     Indication: Migraine
     Dosage: 80 MILLIGRAMS, AT AN UNSPECIFIED FREQUENCY (DOSAGE FORM: NOT SPECIFIED)
     Route: 065
  116. PROPRANOLOL [Suspect]
     Active Substance: PROPRANOLOL HYDROCHLORIDE
     Dosage: 80 MILLIGRAMS (DOSAGE FORM: NOT SPECIFIED)
     Route: 065
  117. PROPRANOLOL [Suspect]
     Active Substance: PROPRANOLOL HYDROCHLORIDE
     Dosage: 40 MILLIGRAMS AT AN UNSPECIFIED FREQUENCY (DOSAGE FORM: NOT SPECIFIED)
     Route: 065
  118. PROPRANOLOL [Suspect]
     Active Substance: PROPRANOLOL HYDROCHLORIDE
     Dosage: 40 MILLIGRAMS, AT AN UNSPECIFIED FREQUENCY
     Route: 065
  119. PROPRANOLOL [Suspect]
     Active Substance: PROPRANOLOL HYDROCHLORIDE
     Dosage: 80 MILLIGRAMS, AT AN UNSPECIFIED FREQUENCY
     Route: 065
  120. PROPRANOLOL [Suspect]
     Active Substance: PROPRANOLOL HYDROCHLORIDE
     Dosage: 80 MILLIGRAMS, 1 EVERY 6 MONTHS
     Route: 065
  121. PROPRANOLOL [Suspect]
     Active Substance: PROPRANOLOL HYDROCHLORIDE
     Dosage: 80 MILLIARAM AT AN UNSPECIFIED FREQUENCY (THERAPY DURATION 2 YEARS)
     Route: 048
  122. PROPRANOLOL [Suspect]
     Active Substance: PROPRANOLOL HYDROCHLORIDE
     Dosage: 80 MILLIARAM AT AN UNSPECIFIED FREQUENCY (THERAPY DURATION 2 YEARS)
     Route: 048
  123. PROPRANOLOL [Suspect]
     Active Substance: PROPRANOLOL HYDROCHLORIDE
     Dosage: 80 MILLIGRAM AT AN UNSPECIFIED FREQUENCY (THERAPY DURATION : 4 YEARS)
     Route: 065
  124. PROPRANOLOL [Suspect]
     Active Substance: PROPRANOLOL HYDROCHLORIDE
     Dosage: 40 MILLIGRAM AT AN UNSPECIFIED FREQUENCY
     Route: 065
  125. PROPRANOLOL [Suspect]
     Active Substance: PROPRANOLOL HYDROCHLORIDE
     Dosage: 40 MILLIGRAM AT AN UNSPECIFIED FREQUENCY
     Route: 048
  126. RABEPRAZOLE [Suspect]
     Active Substance: RABEPRAZOLE
     Indication: Migraine
     Dosage: 1 DOSAGE FORM, 2 EVERY 1 DAY (DPSAGE FORM: NOT SPECIFIED)
     Route: 065
  127. RABEPRAZOLE [Suspect]
     Active Substance: RABEPRAZOLE
     Dosage: UNK
     Route: 065
  128. RABEPRAZOLE [Suspect]
     Active Substance: RABEPRAZOLE
     Dosage: 1 DOSAGE FORMS 1 EVERY 12  HOURS
     Route: 065
  129. RABEPRAZOLE [Suspect]
     Active Substance: RABEPRAZOLE
     Dosage: 1 DOSAGE FORMS 1 EVERY 12 HOURS
     Route: 065
  130. RABEPRAZOLE [Suspect]
     Active Substance: RABEPRAZOLE
     Dosage: 10 MILLIGRAM AT AN UNSPECIFIED FREQUENCY
     Route: 065
  131. RABEPRAZOLE [Suspect]
     Active Substance: RABEPRAZOLE
     Dosage: 1 DOSAGE FORMS 1 EVERY 12 HOURS
     Route: 065
  132. RABEPRAZOLE [Suspect]
     Active Substance: RABEPRAZOLE
     Dosage: 2 DOSAGE FORMS 1 EVERY 24 HOURS
     Route: 065
  133. RABEPRAZOLE [Suspect]
     Active Substance: RABEPRAZOLE
     Dosage: 2 DOSAGE FORMS 2 EVERY 1 DAYS
     Route: 065
  134. RABEPRAZOLE [Suspect]
     Active Substance: RABEPRAZOLE
     Dosage: 1 DOSAGE FORMS AT AN UNSPECIFIED FREQUENCY
     Route: 048
  135. RIZATRIPTAN [Suspect]
     Active Substance: RIZATRIPTAN
     Indication: Migraine
     Dosage: 10 MILLIGRAMS (DOSAGE FORM: NOT SPECIFIED)
     Route: 065
  136. RIZATRIPTAN [Suspect]
     Active Substance: RIZATRIPTAN
     Dosage: 1 DOSAGE FORM (DOSAGE FORM: NOT SPECIFIED)
     Route: 065
  137. RIZATRIPTAN [Suspect]
     Active Substance: RIZATRIPTAN
     Dosage: AT AN UNSPECIFIED DOSE AND FREQUENCY (DOSAGE FORM: NOT SPECIFIED)
     Route: 065
  138. ALBUTEROL [Suspect]
     Active Substance: ALBUTEROL
     Indication: Product used for unknown indication
     Dosage: 1 DOSAGE FORM, 1 EVERY 1 DAY (DOSAGE FORM: NOT SPECIFIED)
     Route: 065
  139. ALBUTEROL [Suspect]
     Active Substance: ALBUTEROL
     Dosage: AT AN UNSPECIFIED DOSE AND FREQUENCY
     Route: 065
  140. ALBUTEROL [Suspect]
     Active Substance: ALBUTEROL
     Dosage: 1 DOSAGE FORM, AT AN UNSPECIFIED FREQUENCY
     Route: 065
  141. ALBUTEROL [Suspect]
     Active Substance: ALBUTEROL
     Dosage: 4 DOSAGE FORM AT AN UNSPECIFIED FREQUENCY (DOSAGE FORM : NOT SPECIFIED)
     Route: 065
  142. ALBUTEROL [Suspect]
     Active Substance: ALBUTEROL
     Dosage: 100 MILLIGRAM AT AN UNSPECIFIED FREQUENCY
     Route: 065
  143. ALBUTEROL [Suspect]
     Active Substance: ALBUTEROL
     Dosage: 1 DOSAGE FORMS 4 EVERY 1 DAYS
     Route: 065
  144. ALBUTEROL [Suspect]
     Active Substance: ALBUTEROL
     Dosage: 1 DOSAGE FORMS 1 EVERY 24 HOURS
     Route: 065
  145. ALBUTEROL [Suspect]
     Active Substance: ALBUTEROL
     Dosage: 4 DOSAGE FORMS 1 EVERY 24 HOURS
     Route: 065
  146. ALBUTEROL [Suspect]
     Active Substance: ALBUTEROL
     Dosage: 1 DOSAGE FORMS AT AN UNSPECIFIED FREQUENCY
     Route: 065
  147. MOMETASONE [Suspect]
     Active Substance: MOMETASONE
     Indication: Product used for unknown indication
     Dosage: 2 DOSAGE FORMS 3 EVERY 1 DAYS (DOSAGE FORM : SPRAY, METERED DOSE)
     Route: 065
  148. MOMETASONE [Suspect]
     Active Substance: MOMETASONE
     Dosage: 2 DOSAGE FORMS AT AN UNSPECIFIED FREQUENCY
     Route: 065
  149. MOMETASONE [Suspect]
     Active Substance: MOMETASONE
     Dosage: (THERAPY DURATION: 144 DAYS)
     Route: 065
  150. MOMETASONE [Suspect]
     Active Substance: MOMETASONE
     Dosage: 6 DOSAGE FORMS 3 EVERY 1 DAYS
     Route: 065
  151. MOMETASONE [Suspect]
     Active Substance: MOMETASONE
     Dosage: 2 DOSAGE FORMS 2 EVERY 1 DAYS
     Route: 065
  152. MOMETASONE [Suspect]
     Active Substance: MOMETASONE
     Dosage: 10 MILLIGRAM AT AN UNSPECIFIED FREQUENCY
     Route: 065
  153. MOMETASONE [Suspect]
     Active Substance: MOMETASONE
     Dosage: 2 DOSAGE FORMS 3 EVERY 1 DAYS (THERAPY DURATION: 144 DAYS) (DOSAGE FORM : SPRAY, METERED DOSE)
     Route: 065
  154. SERTRALINE [Suspect]
     Active Substance: SERTRALINE HYDROCHLORIDE
     Indication: Migraine
     Dosage: 50 MILLIGRAMS, AT AN UNSPECIFIED FREQUENCY
     Route: 065
  155. SERTRALINE [Suspect]
     Active Substance: SERTRALINE HYDROCHLORIDE
     Dosage: UNK
     Route: 065
  156. SUMATRIPTAN [Suspect]
     Active Substance: SUMATRIPTAN
     Indication: Migraine
     Dosage: 100 MILLIGRAM, AT AN UNSPECIFIED FREQUENCY (DOSAGE FORM: NOT SPECIFIED)
     Route: 065
  157. SUMATRIPTAN [Suspect]
     Active Substance: SUMATRIPTAN
     Dosage: AT AN UNSPECIFIED DOSE AND FREQUENCY (DOSAGE FORM: NOT SPECIFIED)
     Route: 065
  158. DULOXETINE [Suspect]
     Active Substance: DULOXETINE
     Indication: Product used for unknown indication
     Dosage: (MANUFACTURER: TEVA) 60 MILLIGRAMS (DOSAGE FORM: NOT SPECIFIED)
     Route: 065
  159. DULOXETINE [Suspect]
     Active Substance: DULOXETINE
     Dosage: AT AN UNSPECIFIED DOSE AND FREQUENCY (DOSAGE FORM: CAPSULE, DELAYED RELEASE)
     Route: 065
  160. DULOXETINE [Suspect]
     Active Substance: DULOXETINE
     Dosage: (MANUFACTURER: TEVA) 60 MILLIGRAMS (DOSAGE FORM: CAPSULE, DELAYED RELEASE)
     Route: 065
  161. DULOXETINE [Suspect]
     Active Substance: DULOXETINE
     Dosage: (MANUFACTURER: TEVA) AT AN UNSPECIFIED DOSE AND FREQUENCY (DOSAGE FORM: CAPSULE, DELAYED RELEASE)
     Route: 065
  162. TOPIRAMATE [Suspect]
     Active Substance: TOPIRAMATE
     Indication: Migraine
     Dosage: 25 MILLIGRAMS (DOSAGE FORM: NOT SPECIFIED)
     Route: 065
  163. TOPIRAMATE [Suspect]
     Active Substance: TOPIRAMATE
     Dosage: AT AN UNSPECIFIED DOSE AND FREQUENCY (DOSAGE FORM: NOT SPECIFIED)
     Route: 065
  164. TRAMADOL HYDROCHLORIDE [Suspect]
     Active Substance: TRAMADOL HYDROCHLORIDE
     Indication: Migraine
     Dosage: AT AN UNSPECIFIED DOSE AND FREQUENCY (DOSAGE FORM: NOT SPECIFIED)
     Route: 065
  165. TRAMADOL HYDROCHLORIDE [Suspect]
     Active Substance: TRAMADOL HYDROCHLORIDE
     Dosage: AT AN UNSPECIFIED DOSE AND FREQUENCY
     Route: 065
  166. TRIMETHOPRIM [Suspect]
     Active Substance: TRIMETHOPRIM
     Indication: Migraine
     Dosage: AT AN UNSPECIFIED DOSE AND FREQUENCY
     Route: 065
  167. TRIMETHOPRIM [Suspect]
     Active Substance: TRIMETHOPRIM
     Dosage: 6 DOSAGE FORMS, 1 EVERY 1 DAY
     Route: 065
  168. TRIMETHOPRIM [Suspect]
     Active Substance: TRIMETHOPRIM
     Dosage: 2 DOSAGE FORMS 3 EVERY 1 DAYS
     Route: 065
  169. VENLAFAXINE HYDROCHLORIDE [Suspect]
     Active Substance: VENLAFAXINE HYDROCHLORIDE
     Indication: Migraine
     Dosage: 150 MILLIGRAM, AT AN UNSPECIFIED FREQUENCY
     Route: 065
  170. VENLAFAXINE HYDROCHLORIDE [Suspect]
     Active Substance: VENLAFAXINE HYDROCHLORIDE
     Dosage: 75 MILLIGRAM, AT AN UNSPECIFIED FREQUENCY (THERAPY DURATION : 62 MONTHS)
     Route: 065
  171. VENLAFAXINE HYDROCHLORIDE [Suspect]
     Active Substance: VENLAFAXINE HYDROCHLORIDE
     Dosage: 75 MILLIGRAM AT AN UNSPECIFIED FREQUENCY (THERAPY DURATION 62 MONTHS)
     Route: 065
  172. VENLAFAXINE HYDROCHLORIDE [Suspect]
     Active Substance: VENLAFAXINE HYDROCHLORIDE
     Dosage: 75 MILLIGRAM AT AN UNSPECIFIED FREQUENCY (THERAPY DURATION: 6 YEARS)
     Route: 065
  173. ZOPICLONE [Suspect]
     Active Substance: ZOPICLONE
     Indication: Migraine
     Dosage: 1 DOSAGE FORM, 1 EVERY 1 DAY
     Route: 048
  174. ZOPICLONE [Suspect]
     Active Substance: ZOPICLONE
     Dosage: 5 MILLIGRAM, AT AN UNSPECIFIED FREQUENCY
     Route: 065
  175. ZOPICLONE [Suspect]
     Active Substance: ZOPICLONE
     Dosage: 1 DOSAGE FORM
     Route: 048
  176. ZOPICLONE [Suspect]
     Active Substance: ZOPICLONE
     Dosage: 1 DOSAGE FORMS AT AN UNSPECIFIED FREQUENCY
     Route: 065
  177. ACETAMINOPHEN\BUTYLSCOPOLAMINE BROMIDE [Suspect]
     Active Substance: ACETAMINOPHEN\BUTYLSCOPOLAMINE BROMIDE
     Indication: Product used for unknown indication
     Dosage: 10 MILLIGRAMS
     Route: 065
  178. CYMBALTA [Suspect]
     Active Substance: DULOXETINE HYDROCHLORIDE
     Indication: Product used for unknown indication
     Dosage: 2 DOSAGE FORM AT AN UNSPECIFIED FREQUENCY (DOSAGE FORM : NOT SPECIFIED)
     Route: 065
  179. AZITHROMYCIN ANHYDROUS [Suspect]
     Active Substance: AZITHROMYCIN ANHYDROUS
     Indication: Migraine
     Dosage: AT AN UNSPECIFIED DOSE AND FREQUENCY (DOSAGE FORM: NOT SPECIFIED)
     Route: 065
  180. AZITHROMYCIN ANHYDROUS [Suspect]
     Active Substance: AZITHROMYCIN ANHYDROUS
     Dosage: 500 MILLIGRAMS (DOSAGE FORM: NOT SPECIFIED)
     Route: 065
  181. AZITHROMYCIN ANHYDROUS [Suspect]
     Active Substance: AZITHROMYCIN ANHYDROUS
     Dosage: (THERAPY DURATION: 1 DAYS)
     Route: 065
  182. AZITHROMYCIN ANHYDROUS [Suspect]
     Active Substance: AZITHROMYCIN ANHYDROUS
     Dosage: 500 MILLIGRAM AT AN UNSPECIFIED FREQUENCY (THERAPY DURATION : 1 DAYS)
     Route: 065
  183. CLOTRIMAZOLE\FLUCONAZOLE [Suspect]
     Active Substance: CLOTRIMAZOLE\FLUCONAZOLE
     Dosage: 1 DOSAGE FORM
     Route: 065
  184. CLOTRIMAZOLE\FLUCONAZOLE [Suspect]
     Active Substance: CLOTRIMAZOLE\FLUCONAZOLE
     Dosage: UNK
     Route: 065
  185. RIZATRIPTAN BENZOATE [Suspect]
     Active Substance: RIZATRIPTAN BENZOATE
     Indication: Migraine
     Dosage: 10 MILLIGRAMS 1 EVERY 1 DAY
     Route: 065
  186. RIZATRIPTAN BENZOATE [Suspect]
     Active Substance: RIZATRIPTAN BENZOATE
     Dosage: 1 DOSAGE FORM
     Route: 065
  187. RIZATRIPTAN BENZOATE [Suspect]
     Active Substance: RIZATRIPTAN BENZOATE
     Dosage: 10 MILLIGRAM 1 EVERY 24 HOURS
     Route: 065
  188. RABEPRAZOLE [Suspect]
     Active Substance: RABEPRAZOLE
     Indication: Migraine
     Dosage: 1 DOSAGE FORM 1 EVERY 12 HOURS
     Route: 048
  189. VENLAFAXINE [Suspect]
     Active Substance: VENLAFAXINE HYDROCHLORIDE
     Indication: Migraine
     Dosage: 75 MILLIGRAMS
     Route: 065
  190. VENLAFAXINE [Suspect]
     Active Substance: VENLAFAXINE HYDROCHLORIDE
     Dosage: 150 MILLIGRAMS
     Route: 065
  191. CODEINE SULFATE [Suspect]
     Active Substance: CODEINE SULFATE
     Indication: Migraine
     Dosage: AT AN UNSPECIFIED DOSE AND FREQUENCY
     Route: 065
  192. CODEINE SULFATE [Suspect]
     Active Substance: CODEINE SULFATE
     Dosage: 40 MILLIGRAMS
     Route: 065
  193. TRAMADOL [Suspect]
     Active Substance: TRAMADOL
     Indication: Product used for unknown indication
     Dosage: AT AN UNSPECIFIED DOSE AND FREQUENCY
     Route: 065
  194. ESCITALOPRAM OXALATE [Suspect]
     Active Substance: ESCITALOPRAM OXALATE
     Indication: Migraine
     Dosage: 10 MILLIGRAMS
     Route: 065
  195. ESCITALOPRAM OXALATE [Suspect]
     Active Substance: ESCITALOPRAM OXALATE
     Dosage: 40 MILLIGRAM AT AN UNSPECIFIED FREQUENCY
     Route: 048
  196. ACETAMINOPHEN\TRAMADOL HYDROCHLORIDE [Suspect]
     Active Substance: ACETAMINOPHEN\TRAMADOL HYDROCHLORIDE
     Indication: Product used for unknown indication
     Dosage: AT AN UNSPECIFIED DOSE AND FREQUENCY
     Route: 065
  197. AZITHROMYCIN DIHYDRATE [Suspect]
     Active Substance: AZITHROMYCIN DIHYDRATE
     Indication: Product used for unknown indication
     Dosage: 500 MILLIGRAMS, AT AN UNSPECIFIED FREQUENCY
     Route: 065
  198. AZITHROMYCIN DIHYDRATE [Suspect]
     Active Substance: AZITHROMYCIN DIHYDRATE
     Dosage: AT AN UNSPECIFIED DOSE AND FREQUENCY
     Route: 065
  199. INDOMETHACIN [Suspect]
     Active Substance: INDOMETHACIN
     Indication: Migraine
     Dosage: 1 DOSAGE FORM EVERY 12 HOURS
     Route: 054
  200. INDOMETHACIN [Suspect]
     Active Substance: INDOMETHACIN
     Dosage: 2 DOSAGE FORMS 1 EVERY 1 DAY
     Route: 054
  201. INDOMETHACIN [Suspect]
     Active Substance: INDOMETHACIN
     Dosage: 1 DOSAGE FORM 2 EVERY 1 DAY
     Route: 054
  202. INDOMETHACIN [Suspect]
     Active Substance: INDOMETHACIN
     Dosage: 2 DOSAGE FORM AT AN UNSPECIFIED FREQUENCY
     Route: 054
  203. INDOMETHACIN [Suspect]
     Active Substance: INDOMETHACIN
     Dosage: 1 DOSAGE FORM 1 EVERY 12 HOURS (THERAPY DURATION: 3 YEARS)
     Route: 054
  204. INDOMETHACIN [Suspect]
     Active Substance: INDOMETHACIN
     Dosage: 2 DOSAGE FORM 1 EVERY 24 HOURS
     Route: 054
  205. INDOMETHACIN [Suspect]
     Active Substance: INDOMETHACIN
     Dosage: 1 DOSAGE FORM AT AN UNSPECIFIED FREQUENCY
     Route: 054
  206. INDOMETHACIN [Suspect]
     Active Substance: INDOMETHACIN
     Dosage: AT UNSPECIFIED DOSE 2 EVERY 1 DAYS,
     Route: 065
  207. AZITHROMYCIN [Suspect]
     Active Substance: AZITHROMYCIN
     Indication: Migraine
     Dosage: AT AN UNSPECIFIED DOSE AND FREQUENCY (DOSAGE FORM: NOT SPECIFIED)
     Route: 065
  208. AZITHROMYCIN [Suspect]
     Active Substance: AZITHROMYCIN
     Dosage: 500 MILLIGRAMS, 1 EVERY 1 DAYS
     Route: 065
  209. CIPROFLOXACIN LACTATE [Suspect]
     Active Substance: CIPROFLOXACIN LACTATE
     Indication: Product used for unknown indication
     Dosage: 1 DOSAGE FORM AT AN UNSPECIFIED FREQUENCY
     Route: 065
  210. CIPROFLOXACIN LACTATE [Suspect]
     Active Substance: CIPROFLOXACIN LACTATE
     Dosage: 500 MILLIGRAM AT AN UNSPECIFIED FREQUENCY
     Route: 065
  211. CIPROFLOXACIN LACTATE [Suspect]
     Active Substance: CIPROFLOXACIN LACTATE
     Dosage: 2 DOSAGE FORM 2 EVERY 1 DAYS
     Route: 065
  212. CIPROFLOXACIN LACTATE [Suspect]
     Active Substance: CIPROFLOXACIN LACTATE
     Dosage: 1 DOSAGE FORM 2 EVERY 1 DAYS
     Route: 065
  213. ZOLMITRIPTAN [Suspect]
     Active Substance: ZOLMITRIPTAN
     Indication: Product used for unknown indication
     Dosage: (DOSAGE FORM : NOT SPECIFIED)
     Route: 065
  214. ZOLMITRIPTAN [Suspect]
     Active Substance: ZOLMITRIPTAN
     Dosage: 1 DOSAGE FORMS 1 EVERY 24 HOURS (DOSAGE FORM : NOT SPECIFIED)
     Route: 065
  215. ZOLMITRIPTAN [Suspect]
     Active Substance: ZOLMITRIPTAN
     Dosage: 10 MILLIGRAM AT AN UNSPECIFIED FREQUENCY
     Route: 065
  216. ZOLMITRIPTAN [Suspect]
     Active Substance: ZOLMITRIPTAN
     Dosage: 10 MILLIGRAM 1 EVERY 24 HOURS
     Route: 065
  217. ZOLMITRIPTAN [Suspect]
     Active Substance: ZOLMITRIPTAN
     Dosage: 1 DOSAGE FORMS AT AN UNSPECIFIED FREQUENCY
     Route: 065
  218. ZOLMITRIPTAN [Suspect]
     Active Substance: ZOLMITRIPTAN
     Dosage: 1 DOSAGE FORMS 1 EVERY 24 HOURS
     Route: 048
  219. ZOLMITRIPTAN [Suspect]
     Active Substance: ZOLMITRIPTAN
     Dosage: 5 MILLIGRAM AT AN UNSPECIFIED FREQUENCY
     Route: 048
  220. CLOTRIMAZOLE\FLUCONAZOLE [Suspect]
     Active Substance: CLOTRIMAZOLE\FLUCONAZOLE
     Indication: Migraine
     Dosage: AT AN UNSPECIFIED DOSE AND FREQUENCY (1 DAY)
     Route: 065
  221. CLOTRIMAZOLE\FLUCONAZOLE [Suspect]
     Active Substance: CLOTRIMAZOLE\FLUCONAZOLE
     Dosage: 1 DOSAGE FORM AT AN UNSPECIFIED FREQUENCY (1 DAY)
     Route: 065
  222. CIPROFLOXACIN HYDROCHLORIDE [Suspect]
     Active Substance: CIPROFLOXACIN HYDROCHLORIDE
     Indication: Migraine
     Dosage: 1 DOSAGE FORM, 2 EVERY 1 DAY
     Route: 065
  223. CIPROFLOXACIN HYDROCHLORIDE [Suspect]
     Active Substance: CIPROFLOXACIN HYDROCHLORIDE
     Dosage: 2 DOSAGE FORMS 1 EVERY 1 DAY
     Route: 065
  224. CIPROFLOXACIN HYDROCHLORIDE [Suspect]
     Active Substance: CIPROFLOXACIN HYDROCHLORIDE
     Dosage: 500 MILLIGRAMS
     Route: 065
  225. CIPROFLOXACIN HYDROCHLORIDE [Suspect]
     Active Substance: CIPROFLOXACIN HYDROCHLORIDE
     Dosage: 500 MILLIGRAMS (DOSAGE FORM: UNKNOWN)
     Route: 065
  226. CIPROFLOXACIN HYDROCHLORIDE [Suspect]
     Active Substance: CIPROFLOXACIN HYDROCHLORIDE
     Dosage: 1 DOSAGE FORM 1 EVERY 12 HOURS (DOSAGE FORM: UNKNOWN)
     Route: 065
  227. CIPROFLOXACIN HYDROCHLORIDE [Suspect]
     Active Substance: CIPROFLOXACIN HYDROCHLORIDE
     Dosage: 2 DOSAGE FORMS 1 EVERY 12 HOURS (DOSAGE FORM: UNKNOWN)
     Route: 065
  228. CIPROFLOXACIN HYDROCHLORIDE [Suspect]
     Active Substance: CIPROFLOXACIN HYDROCHLORIDE
     Dosage: 1 DOSAGE FORM AT AN UNSPECIFIED FREQUENCY
     Route: 065
  229. CIPROFLOXACIN HYDROCHLORIDE [Suspect]
     Active Substance: CIPROFLOXACIN HYDROCHLORIDE
     Dosage: 2 DOSAGE FORM 1 EVERY 24 HOURS 9THERAPY DURATION: 3 DAYS)
     Route: 065
  230. AMOXICILLIN TRIHYDRATE [Suspect]
     Active Substance: AMOXICILLIN
     Indication: Product used for unknown indication
     Dosage: AT AN UNSPECIFIED DOSE AND FREQUENCY
     Route: 065
  231. AMOXICILLIN TRIHYDRATE [Suspect]
     Active Substance: AMOXICILLIN
     Dosage: 2 DOSAGE FORMS, 3 EVERY 1 DAY
     Route: 065
  232. AMOXICILLIN TRIHYDRATE [Suspect]
     Active Substance: AMOXICILLIN
     Dosage: 2 DOSAGE FORMS 1 EVERY 8 HOURS
     Route: 065
  233. AMOXICILLIN TRIHYDRATE [Suspect]
     Active Substance: AMOXICILLIN
     Dosage: 6 DOSAGE FORMS 1 EVERY 1 DAYS
     Route: 065
  234. ESOMEPRAZOLE MAGNESIUM [Suspect]
     Active Substance: ESOMEPRAZOLE MAGNESIUM
     Indication: Migraine
     Dosage: 40 MILLIGRAMS AT AN UNSPECIFIED FREQUENCY
     Route: 065
  235. ESOMEPRAZOLE MAGNESIUM [Suspect]
     Active Substance: ESOMEPRAZOLE MAGNESIUM
     Dosage: 10 MILLIGRAMS
     Route: 065
  236. ESOMEPRAZOLE MAGNESIUM [Suspect]
     Active Substance: ESOMEPRAZOLE MAGNESIUM
     Dosage: 40 MILLIGRAMS AT AN UNSPECIFIED FREQUENCY
     Route: 048
  237. HYDROMORPHONE HYDROCHLORIDE [Suspect]
     Active Substance: HYDROMORPHONE HYDROCHLORIDE
     Indication: Migraine
     Dosage: AT AN UNSPECIFIED DOSE AND FREQUENCY
     Route: 065
  238. HYDROMORPHONE HYDROCHLORIDE [Suspect]
     Active Substance: HYDROMORPHONE HYDROCHLORIDE
     Dosage: 1 DOSAGE FORM, AT AN UNSPECIFIED FREQUENCY
     Route: 065
  239. HYDROMORPHONE HYDROCHLORIDE [Suspect]
     Active Substance: HYDROMORPHONE HYDROCHLORIDE
     Dosage: 1 DOSAGE FORM, AT AN UNSPECIFIED FREQUENCY
     Route: 065
  240. HYDROMORPHONE HYDROCHLORIDE [Suspect]
     Active Substance: HYDROMORPHONE HYDROCHLORIDE
     Dosage: 1 DOSAGE FORM 1 EVERY 12 HOURS
     Route: 065
  241. HYDROMORPHONE HYDROCHLORIDE [Suspect]
     Active Substance: HYDROMORPHONE HYDROCHLORIDE
     Dosage: 2 DOSAGE FORM 1 EVERY 1 DAY
     Route: 065
  242. HYDROMORPHONE HYDROCHLORIDE [Suspect]
     Active Substance: HYDROMORPHONE HYDROCHLORIDE
     Dosage: 2 DOSAGE FORM AT AN UNSPECIFIED FREQUENCY
     Route: 065
  243. AZITHROMYCIN [Suspect]
     Active Substance: AZITHROMYCIN
     Indication: Migraine
     Dosage: 500 MILLIGRAM AT AN UNSPECIFIED FREQUENCY
     Route: 065
  244. MAXALT [Suspect]
     Active Substance: RIZATRIPTAN BENZOATE
     Indication: Migraine
     Dosage: 1 DOSAGE FORM, AT AN UNSPECIFIED FREQUENCY
     Route: 065
  245. MAXALT [Suspect]
     Active Substance: RIZATRIPTAN BENZOATE
     Dosage: 10 MILLIGRAM 1 EVERY 1 DAY
     Route: 065
  246. MOMETASONE FUROATE [Suspect]
     Active Substance: MOMETASONE FUROATE
     Indication: Migraine
     Dosage: AT AN UNSPECIFIED DOSE AND FREQUENCY
     Route: 065
  247. MOMETASONE FUROATE [Suspect]
     Active Substance: MOMETASONE FUROATE
     Dosage: 2 DOSAGE FORMS, AT AN UNSPECIFIED FREQUENCY
     Route: 065
  248. METOCLOPRAMIDE HYDROCHLORIDE [Suspect]
     Active Substance: METOCLOPRAMIDE HYDROCHLORIDE
     Indication: Migraine
     Dosage: 10 MILLIGRAMS AT AN UNSPECIFIED FREQUENCY
     Route: 065
  249. METOCLOPRAMIDE HYDROCHLORIDE [Suspect]
     Active Substance: METOCLOPRAMIDE HYDROCHLORIDE
     Dosage: 5 MILLIGRAMS AT AN UNSPECIFIED FREQUENCY
     Route: 065
  250. RABEPRAZOLE SODIUM [Suspect]
     Active Substance: RABEPRAZOLE SODIUM
     Indication: Product used for unknown indication
     Dosage: 10 MILLIGRAMS
     Route: 065
  251. RABEPRAZOLE SODIUM [Suspect]
     Active Substance: RABEPRAZOLE SODIUM
     Dosage: 1 DOSAGE FORM
     Route: 065
  252. RABEPRAZOLE SODIUM [Suspect]
     Active Substance: RABEPRAZOLE SODIUM
     Dosage: 1 DOSAGE FORM 1 EVERY 12 HOURS
     Route: 065
  253. RABEPRAZOLE SODIUM [Suspect]
     Active Substance: RABEPRAZOLE SODIUM
     Dosage: 2 DOSAGE FORM 1 EVERY 1 DAY
     Route: 065
  254. RABEPRAZOLE SODIUM [Suspect]
     Active Substance: RABEPRAZOLE SODIUM
     Dosage: 2 DOSAGE FORM AT AN UNSPECIFIED FREQUENCY
     Route: 065
  255. CLOTRIMAZOLE [Suspect]
     Active Substance: CLOTRIMAZOLE
     Indication: Product used for unknown indication
     Dosage: (DOSAGE FORM: NOT SPECIFIED)
     Route: 065
  256. SERTRALINE HYDROCHLORIDE [Suspect]
     Active Substance: SERTRALINE HYDROCHLORIDE
     Indication: Migraine
     Dosage: 50 MILLIGRAMS, AT AN UNSPECIFIED FREQUENCY
     Route: 065
  257. SUMATRIPTAN SUCCINATE [Suspect]
     Active Substance: SUMATRIPTAN SUCCINATE
     Indication: Migraine
     Dosage: AT AN UNSPECIFIED DOSE AND FREQUENCY
     Route: 065
  258. SUMATRIPTAN SUCCINATE [Suspect]
     Active Substance: SUMATRIPTAN SUCCINATE
     Dosage: 60 MILLIGRAMS, AT AN UNSPECIFIED FREQUENCY
     Route: 065
  259. SUMATRIPTAN SUCCINATE [Suspect]
     Active Substance: SUMATRIPTAN SUCCINATE
     Dosage: 100 MILLIGRAMS, AT AN UNSPECIFIED FREQUENCY
     Route: 065
  260. SUMATRIPTAN SUCCINATE [Suspect]
     Active Substance: SUMATRIPTAN SUCCINATE
     Dosage: AT AN UNSPECIFIED DOSE AND FREQUENCY (DOSAGE FORM: UNKNOWN)
     Route: 065
  261. SUMATRIPTAN SUCCINATE [Suspect]
     Active Substance: SUMATRIPTAN SUCCINATE
     Dosage: 60 MILLIGRAMS AT AN UNSPECIFIED FREQUENCY (DOSAGE FORM: UNKNOWN)
     Route: 065
  262. SUMATRIPTAN SUCCINATE [Suspect]
     Active Substance: SUMATRIPTAN SUCCINATE
     Dosage: 100 MILLIGRAMS AT AN UNSPECIFIED FREQUENCY (DOSAGE FORM: UNKNOWN)
     Route: 065
  263. ACETAMINOPHEN AND CODEINE [Concomitant]
     Active Substance: ACETAMINOPHEN\CODEINE PHOSPHATE
     Indication: Product used for unknown indication
     Dosage: AT AN UNSPECIFIED DOSE AND FREQUENCY
     Route: 065
  264. AMOXICILLIN [Concomitant]
     Active Substance: AMOXICILLIN
     Dosage: DOSAGE FORM: NOT SPECIFIED
     Route: 065
  265. LISINOPRIL [Concomitant]
     Active Substance: LISINOPRIL
     Indication: Product used for unknown indication
     Dosage: AT AN UNSPECIFIED DOSE AND FREQUENCY
     Route: 065
  266. LISINOPRIL [Concomitant]
     Active Substance: LISINOPRIL
     Dosage: 2 DOSAGE FORMS, 1 EVERY 1 DAY
     Route: 065
  267. LISINOPRIL [Concomitant]
     Active Substance: LISINOPRIL
     Dosage: 1 DOSAGE FORM, 1 EVERY 1 DAY
     Route: 065
  268. LISINOPRIL [Concomitant]
     Active Substance: LISINOPRIL
     Dosage: 1 DOSAGE FORM 1 EVERY 24 HOURS
     Route: 065
  269. LISINOPRIL [Concomitant]
     Active Substance: LISINOPRIL
     Dosage: 2 DOSAGE FORM 1 EVERY 24 HOURS
     Route: 065
  270. LISINOPRIL [Concomitant]
     Active Substance: LISINOPRIL
     Dosage: 1 DOSAGE FORMS AT AN UNSPECIFIED FREQUENCY
     Route: 065
  271. ALBUTEROL [Concomitant]
     Active Substance: ALBUTEROL
     Indication: Product used for unknown indication
     Dosage: AT AN UNSPECIFIED DOSE AND FREQUENCY (DOSAGE FORM: NOT SPECIFIED)
     Route: 065
  272. ALBUTEROL [Concomitant]
     Active Substance: ALBUTEROL
     Dosage: AT AN UNSPECIFIED DOSE AND FREQUENCY
     Route: 065
  273. ALBUTEROL [Concomitant]
     Active Substance: ALBUTEROL
     Dosage: 1 DOSAGE FORM 4 EVERY 1 DAYS
     Route: 065
  274. ALBUTEROL [Concomitant]
     Active Substance: ALBUTEROL
     Dosage: UNK
  275. AZITHROMYCIN [Concomitant]
     Active Substance: AZITHROMYCIN
     Dosage: AT AN UNSPECIFIED DOSE AND FREQUENCY (DOSAGE FORM: NOT SPECIFIED)
     Route: 065
  276. CEFUROXIME [Concomitant]
     Active Substance: CEFUROXIME
     Indication: Product used for unknown indication
     Dosage: AT AN UNSPECIFIED DOSE AND FREQUENCY (DOSAGE FORM: NOT SPECIFIED)
     Route: 065
  277. CEPHALEXIN [Concomitant]
     Active Substance: CEPHALEXIN
     Indication: Product used for unknown indication
     Dosage: AT AN UNSPECIFIED DOSE AND FREQUENCY (DOSAGE FORM: NOT SPECIFIED)
     Route: 065
  278. CEPHALEXIN [Concomitant]
     Active Substance: CEPHALEXIN
     Dosage: 1 DOSAGE FORM, 3 EVERY 1 DAY
     Route: 065
  279. CEPHALEXIN [Concomitant]
     Active Substance: CEPHALEXIN
     Dosage: 1 DOSAGE FORM, AT AN UNSPECIFIED FREQUENCY
     Route: 065
  280. CEPHALEXIN [Concomitant]
     Active Substance: CEPHALEXIN
     Dosage: 3 DOSAGE FORMS, 1 EVERY 1 DAY
     Route: 065
  281. CEPHALEXIN [Concomitant]
     Active Substance: CEPHALEXIN
     Dosage: 3 DOSAGE FORM AT AN UNSPECIFIED FREQUENCY
     Route: 065
  282. CEPHALEXIN [Concomitant]
     Active Substance: CEPHALEXIN
     Dosage: 3 DOSAGE FORM 1 EVERY 24 HOURS
     Route: 065
  283. DANAZOL [Concomitant]
     Active Substance: DANAZOL
     Indication: Product used for unknown indication
     Dosage: AT AN UNSPECIFIED DOSE AND FREQUENCY
     Route: 065
  284. DANAZOL [Concomitant]
     Active Substance: DANAZOL
     Dosage: 1 DOSAGE FORM 1 EVERY 2 DAYS
     Route: 065
  285. DANAZOL [Concomitant]
     Active Substance: DANAZOL
     Dosage: 1 DOSAGE FORM 2 EVERY 1 DAYS
     Route: 065
  286. DANAZOL [Concomitant]
     Active Substance: DANAZOL
     Dosage: 1 DOSAGE FORM
     Route: 065
  287. DANAZOL [Concomitant]
     Active Substance: DANAZOL
     Dosage: 2 DOSAGE FORM 1 EVERY 1 DAYS
     Route: 065
  288. DANAZOL [Concomitant]
     Active Substance: DANAZOL
     Dosage: 2 DOSAGE FORM AT AN UNSPECIFIED FREQUENCY
     Route: 065
  289. DANAZOL [Concomitant]
     Active Substance: DANAZOL
     Dosage: 2 DOSAGE FORM 1 EVERY 24 HOURS
     Route: 065
  290. CYMBALTA [Concomitant]
     Active Substance: DULOXETINE HYDROCHLORIDE
     Indication: Product used for unknown indication
     Route: 065
  291. CYMBALTA [Concomitant]
     Active Substance: DULOXETINE HYDROCHLORIDE
     Dosage: 1 DOSAGE FORM 1 EVERY 1 DAY
     Route: 065
  292. CYMBALTA [Concomitant]
     Active Substance: DULOXETINE HYDROCHLORIDE
     Dosage: 1 DOSAGE FORM 2 EVERY 1 DAY
     Route: 065
  293. CYMBALTA [Concomitant]
     Active Substance: DULOXETINE HYDROCHLORIDE
     Dosage: 1 DOSAGE FORM
     Route: 065
  294. CYMBALTA [Concomitant]
     Active Substance: DULOXETINE HYDROCHLORIDE
     Dosage: 1 DOSAGE FORM 1 EVERY 24 HOURS (DOSAGE FORM: NOT SPECIFIED)
     Route: 065
  295. CYMBALTA [Concomitant]
     Active Substance: DULOXETINE HYDROCHLORIDE
     Dosage: 2 DOSAGE FORM 1 EVERY 24 HOURS
     Route: 065
  296. DANAZOL [Concomitant]
     Active Substance: DANAZOL
     Dosage: AT AN UNSPECIFIED DOSE AND FREQUENCY
     Route: 065
  297. FERROUS FUMARATE [Concomitant]
     Active Substance: FERROUS FUMARATE
     Indication: Product used for unknown indication
     Dosage: AT AN UNSPECIFIED DOSE AND FREQUENCY (DOSAGE FORM: NOT SPECIFIED)
     Route: 065
  298. FERROUS FUMARATE [Concomitant]
     Active Substance: FERROUS FUMARATE
     Dosage: 300 MILLIGRAM (DOSAGE FORM: NOT SPECIFIED)
     Route: 065
  299. FLUOXETINE [Concomitant]
     Active Substance: FLUOXETINE HYDROCHLORIDE
     Indication: Product used for unknown indication
     Dosage: AT AN UNSPECIFIED DOSE AND FREQUENCY (DOSAGE FORM: NOT SPECIFIED)
     Route: 065
  300. FLUOXETINE [Concomitant]
     Active Substance: FLUOXETINE HYDROCHLORIDE
     Dosage: 20 MILLIGRAM, AT AN UNSPECIFIED FREQUENCY (DOSAGE FORM: NOT SPECIFIED)
     Route: 065
  301. FLUTICASONE [Concomitant]
     Active Substance: FLUTICASONE
     Indication: Product used for unknown indication
     Dosage: AT AN UNSPECIFIED DOSE AND FREQUENCY (DOSAGE FORM: NOT SPECIFIED)
     Route: 065
  302. FLUTICASONE [Concomitant]
     Active Substance: FLUTICASONE
     Dosage: 2 DOSAGE FORMS, 1 EVERY 2 DAYS
     Route: 065
  303. FLUTICASONE [Concomitant]
     Active Substance: FLUTICASONE
     Dosage: 4 DOSAGE FORMS, 1 EVERY 1 DAYS
     Route: 065
  304. FLUTICASONE [Concomitant]
     Active Substance: FLUTICASONE
     Dosage: 2 DOSAGE FORM AT AN UNSPECIFIED FREQUENCY
     Route: 065
  305. FLUTICASONE [Concomitant]
     Active Substance: FLUTICASONE
     Dosage: 6 DOSAGE FORM 1 EVERY 24 HOURS
     Route: 065
  306. FLUTICASONE [Concomitant]
     Active Substance: FLUTICASONE
     Dosage: 2 DOSAGE FORM 2 EVERY 1 DAYS
     Route: 065
  307. FLUTICASONE [Concomitant]
     Active Substance: FLUTICASONE
     Dosage: 4 DOSAGE FORM 1 EVERY 24 HOURS
     Route: 065
  308. FLUTICASONE [Concomitant]
     Active Substance: FLUTICASONE
     Dosage: 6 DOSAGE FORM 1 EVERY 24 HOURS
     Route: 065
  309. FLUTICASONE [Concomitant]
     Active Substance: FLUTICASONE
     Dosage: 2 DOSAGE FORM 3 EVERY 1 DAYS
     Route: 065
  310. FROVATRIPTAN [Concomitant]
     Active Substance: FROVATRIPTAN
     Dosage: AT AN UNSPECIFIED DOSE AND FREQUENCY
     Route: 065
  311. MACROBID [Concomitant]
     Active Substance: NITROFURANTOIN\NITROFURANTOIN MONOHYDRATE
     Indication: Product used for unknown indication
     Dosage: AT AN UNSPECIFIED DOSE AND FREQUENCY
     Route: 065
  312. MACROBID [Concomitant]
     Active Substance: NITROFURANTOIN\NITROFURANTOIN MONOHYDRATE
     Dosage: 1 DOSAGE FORMS 1 EVERY 24 HOURS
     Route: 065
  313. MACROBID [Concomitant]
     Active Substance: NITROFURANTOIN\NITROFURANTOIN MONOHYDRATE
     Dosage: 1 DOSAGE FORMS 2 EVERY 1 DAYS
     Route: 065
  314. MACROBID [Concomitant]
     Active Substance: NITROFURANTOIN\NITROFURANTOIN MONOHYDRATE
     Indication: Product used for unknown indication
     Dosage: 100 MILLIGRAMS, AT AN UNSPECIFIED FREQUENCY
     Route: 065
  315. MACROBID [Concomitant]
     Active Substance: NITROFURANTOIN\NITROFURANTOIN MONOHYDRATE
     Dosage: 1 DOSAGE FORM, 1 EVERY 1 DAY
     Route: 065
  316. MACROBID [Concomitant]
     Active Substance: NITROFURANTOIN\NITROFURANTOIN MONOHYDRATE
     Dosage: 1 DOSAGE FORM, AT AN UNSPECIFIED FREQUENCY
     Route: 065
  317. POLYETHYLENE GLYCOLS [Concomitant]
     Active Substance: POLYETHYLENE GLYCOLS
     Indication: Product used for unknown indication
     Dosage: UNK
     Route: 065
  318. METOCLOPRAMIDE [Concomitant]
     Active Substance: METOCLOPRAMIDE
     Indication: Product used for unknown indication
     Dosage: AT AN UNSPECIFIED DOSE AND FREQUENCY (DOSAGE FORM: NOT SPECIFIED)
     Route: 065
  319. METOCLOPRAMIDE [Concomitant]
     Active Substance: METOCLOPRAMIDE
     Dosage: 1 DOSAGE FORM, AT AN UNSPECIFIED FREQUENCY (DOSAGE FORM: NOT SPECIFIED)
     Route: 065
  320. METOCLOPRAMIDE [Concomitant]
     Active Substance: METOCLOPRAMIDE
     Dosage: 1 DOSAGE FORM, 1 EVERY 1 DAY (DOSAGE FORM: NOT SPECIFIED)
     Route: 065
  321. METOCLOPRAMIDE [Concomitant]
     Active Substance: METOCLOPRAMIDE
     Dosage: 1 DOSAGE FORM 1 EVERY 4 HOURS (DOSAGE FORM: NOT SPECIFIED)
     Route: 065
  322. METOCLOPRAMIDE [Concomitant]
     Active Substance: METOCLOPRAMIDE
     Dosage: 1 DOSAGE FORMS 1 EVERY 24 HOURS (DOSAGE FORM: NOT SPECIFIED)
     Route: 065
  323. METOCLOPRAMIDE [Concomitant]
     Active Substance: METOCLOPRAMIDE
     Dosage: 5 MILLIGRAM AT AN UNSPECIFIED FREQUENCY
     Route: 065
  324. METRONIDAZOLE [Concomitant]
     Active Substance: METRONIDAZOLE
     Indication: Migraine
     Dosage: AT AN UNSPECIFIED DOSE AND FREQUENCY (DOSAGE FORM: NOT SPECIFIED)
     Route: 065
  325. METRONIDAZOLE [Concomitant]
     Active Substance: METRONIDAZOLE
     Dosage: 5 MILLIGRAM, AT AN UNSPECIFIED FREQUENCY (DOSAGE FORM: NOT SPECIFIED)
     Route: 065
  326. MORPHINE SULFATE [Concomitant]
     Active Substance: MORPHINE SULFATE
     Indication: Product used for unknown indication
     Dosage: AT AN UNSPECIFIED DOSE AND FREQUENCY (DOSAGE FORM: NOT SPECIFIED)
     Route: 065
  327. MORPHINE SULFATE [Concomitant]
     Active Substance: MORPHINE SULFATE
     Dosage: 1 DOSAGE FORM, 1 EVERY 1 DAY (DOSAGE FORM: NOT SPECIFIED)
     Route: 065
  328. MORPHINE SULFATE [Concomitant]
     Active Substance: MORPHINE SULFATE
     Dosage: 1 DOSAGE FORM, AT AN UNSPECIFIED FREQUENCY (DOSAGE FORM: NOT SPECIFIED)
     Route: 065
  329. MORPHINE SULFATE [Concomitant]
     Active Substance: MORPHINE SULFATE
     Dosage: 1 DOSAGE FORMS 1 EVERY 24 HOURS
     Route: 065
  330. NASONEX [Concomitant]
     Active Substance: MOMETASONE FUROATE
     Indication: Product used for unknown indication
     Dosage: AT AN UNSPECIFIED DOSE AND FREQUENCY (DOSAGE FORM: SPRAY, METERED DOSE)
     Route: 065
  331. NASONEX [Concomitant]
     Active Substance: MOMETASONE FUROATE
     Dosage: 2 DOSAGE FORMS, 1 EVERY 1 DAY (DOSAGE FORM: SPRAY, METERED DOSE)
     Route: 065
  332. NASONEX [Concomitant]
     Active Substance: MOMETASONE FUROATE
     Dosage: 2 DOSAGE FORMS (DOSAGE FORM: SPRAY, METERED DOSE)
     Route: 065
  333. NASONEX [Concomitant]
     Active Substance: MOMETASONE FUROATE
     Dosage: 4 DOSAGE FORMS 1 EVERY 1 DAY (DOSAGE FORM: SPRAY, METERED DOSE)
     Route: 065
  334. NAPROXEN [Concomitant]
     Active Substance: NAPROXEN
     Indication: Product used for unknown indication
     Dosage: AT AN UNSPECIFIED DOSE AND FREQUENCY (DOSAGE FORM: NOT SPECIFIED)
     Route: 065
  335. NAPROXEN [Concomitant]
     Active Substance: NAPROXEN
     Dosage: 1 DOSAGE FORM 1 EVERY 8 HOURS (DOSAGE FORM: NOT SPECIFIED)
     Route: 065
  336. NAPROXEN [Concomitant]
     Active Substance: NAPROXEN
     Dosage: 1 DOSAGE FORM 3 EVERY 1 DAY (DOSAGE FORM: NOT SPECIFIED)
     Route: 065
  337. NAPROXEN [Concomitant]
     Active Substance: NAPROXEN
     Dosage: 3 DOSAGE FORMS 1 EVERY 1 DAY (DOSAGE FORM: NOT SPECIFIED)
     Route: 065
  338. NAPROXEN [Concomitant]
     Active Substance: NAPROXEN
     Dosage: 1 DOSAGE FORM 1 EVERY 12 HOURS (DOSAGE FORM: NOT SPECIFIED)
     Route: 065
  339. NAPROXEN [Concomitant]
     Active Substance: NAPROXEN
     Dosage: 1 DOSAGE FORM (DOSAGE FORM: NOT SPECIFIED)
     Route: 065
  340. NAPROXEN [Concomitant]
     Active Substance: NAPROXEN
     Dosage: 1 DOSAGE FORMS 2 EVERY 1 DAYS
     Route: 065
  341. NAPROXEN [Concomitant]
     Active Substance: NAPROXEN
     Dosage: 2 DOSAGE FORMS 1 EVERY 24 HOURS
     Route: 065
  342. NAPROXEN [Concomitant]
     Active Substance: NAPROXEN
     Dosage: 2 DOSAGE FORMS 2 EVERY 1 DAYS
     Route: 065
  343. NAPROXEN [Concomitant]
     Active Substance: NAPROXEN
     Dosage: 4 DOSAGE FORMS 1 EVERY 24 HOURS
     Route: 065
  344. NAPROXEN [Concomitant]
     Active Substance: NAPROXEN
     Dosage: 2 DOSAGE FORMS AT AN UNSPECIFIED FREQUENCY
     Route: 065
  345. NITROFURANTOIN [Concomitant]
     Active Substance: NITROFURANTOIN
     Indication: Product used for unknown indication
     Dosage: AT AN UNSPECIFIED DOSE AND FREQUENCY (DOSAGE FORM: NOT SPECIFIED)
     Route: 065
  346. NITROFURANTOIN [Concomitant]
     Active Substance: NITROFURANTOIN
     Dosage: 100 MILLIGRAMS, AT AN UNSPECIFIED FREQUENCY (DOSAGE FORM: NOT SPECIFIED)
     Route: 065
  347. OSELTAMIVIR [Concomitant]
     Active Substance: OSELTAMIVIR
     Indication: Product used for unknown indication
     Dosage: AT AN UNSPECIFIED DOSE AND FREQUENCY
     Route: 065
  348. OSELTAMIVIR [Concomitant]
     Active Substance: OSELTAMIVIR
     Dosage: 1 DOSAGE FORM 1 EVERY 12 HOURS
     Route: 065
  349. OSELTAMIVIR [Concomitant]
     Active Substance: OSELTAMIVIR
     Dosage: 1 DOSAGE FORM, 2 EVERY 1 DAY
     Route: 065
  350. OSELTAMIVIR [Concomitant]
     Active Substance: OSELTAMIVIR
     Dosage: 1 DOSAGE FORM, AT AN UNSPECIFIED FREQUENCY
     Route: 065
  351. OSELTAMIVIR [Concomitant]
     Active Substance: OSELTAMIVIR
     Dosage: 2 DOSAGE FORMS, 1 EVERY 1 DAY
     Route: 065
  352. PANTOPRAZOLE [Concomitant]
     Active Substance: PANTOPRAZOLE
     Dosage: AT AN UNSPECIFIED DOSE AND FREQUENCY (DOSAGE FORM: NOT SPECIFIED)
     Route: 065
  353. ACETAMINOPHEN\CODEINE PHOSPHATE [Concomitant]
     Active Substance: ACETAMINOPHEN\CODEINE PHOSPHATE
     Dosage: AT AN UNSPECIFIED DOSE AND FREQUENCY
     Route: 065
  354. Statex [Concomitant]
     Dosage: AT AN UNSPECIFIED DOSE AND FREQUENCY (DOSAGE FORM: NOT SPECIFIED)
     Route: 065
  355. SULFATRIM [Concomitant]
     Active Substance: SULFAMETHOXAZOLE\TRIMETHOPRIM
     Indication: Product used for unknown indication
     Dosage: AT AN UNSPECIFIED DOSE AND FREQUENCY (DOSAGE FORM: NOT SPECIFIED)
     Route: 065
  356. SULFATRIM [Concomitant]
     Active Substance: SULFAMETHOXAZOLE\TRIMETHOPRIM
     Dosage: 1 DOSAGE FORM, 1 EVERY 1 DAY
     Route: 065
  357. SULFATRIM [Concomitant]
     Active Substance: SULFAMETHOXAZOLE\TRIMETHOPRIM
     Dosage: 2 DOSAGE FORMS, 1 EVERY 1 DAY
     Route: 065
  358. SULFATRIM [Concomitant]
     Active Substance: SULFAMETHOXAZOLE\TRIMETHOPRIM
     Dosage: 2 DOSAGE FORMS
     Route: 065
  359. SULFATRIM [Concomitant]
     Active Substance: SULFAMETHOXAZOLE\TRIMETHOPRIM
     Dosage: 1 DOSAGE FORMS
     Route: 065
  360. SULFATRIM [Concomitant]
     Active Substance: SULFAMETHOXAZOLE\TRIMETHOPRIM
     Dosage: 4 DOSAGE FORMS 1 EVERY 1 DAY
     Route: 065
  361. TRAMADOL HYDROCHLORIDE [Concomitant]
     Active Substance: TRAMADOL HYDROCHLORIDE
     Dosage: AT AN UNSPECIFIED DOSE AND FREQUENCY (DOSAGE FORM: NOT SPECIFIED)
     Route: 065
  362. VENLAFAXINE HYDROCHLORIDE [Concomitant]
     Active Substance: VENLAFAXINE HYDROCHLORIDE
     Dosage: UNK
     Route: 065
  363. PREDNISONE [Concomitant]
     Active Substance: PREDNISONE
     Indication: Product used for unknown indication
     Dosage: 2 DOSAGE FORMS 1 EVERY 1 DAY
     Route: 065
  364. PREDNISONE [Concomitant]
     Active Substance: PREDNISONE
     Dosage: 2 DOSAGE FORMS
     Route: 065
  365. PREDNISONE [Concomitant]
     Active Substance: PREDNISONE
     Dosage: 2 DOSAGE FORM 1 EVERY 24 HOURS
     Route: 065
  366. AZITHROMYCIN DIHYDRATE [Concomitant]
     Active Substance: AZITHROMYCIN DIHYDRATE
     Indication: Product used for unknown indication
     Dosage: 500 MILLIGRAMS
     Route: 065
  367. AZITHROMYCIN DIHYDRATE [Concomitant]
     Active Substance: AZITHROMYCIN DIHYDRATE
     Dosage: UNK
     Route: 065
  368. CEFUROXIME AXETIL [Concomitant]
     Active Substance: CEFUROXIME AXETIL
     Indication: Product used for unknown indication
     Dosage: 1 DOSAGE FORM 2 EVERY 1 DAY (DOSAGE FORM: NOT SPECIFIED)
     Route: 065
  369. CEFUROXIME AXETIL [Concomitant]
     Active Substance: CEFUROXIME AXETIL
     Dosage: 1 DOSAGE FORM 1 EVERY 12 HOURS (DOSAGE FORM: NOT SPECIFIED)
     Route: 065
  370. CEFUROXIME AXETIL [Concomitant]
     Active Substance: CEFUROXIME AXETIL
     Dosage: 2 DOSAGE FORMS 1 EVERY 1 DAY (DOSAGE FORM: NOT SPECIFIED)
     Route: 065
  371. CEFUROXIME AXETIL [Concomitant]
     Active Substance: CEFUROXIME AXETIL
     Dosage: (DOSAGE FORM : NOT SPECIFIED)
     Route: 065
  372. CEFUROXIME AXETIL [Concomitant]
     Active Substance: CEFUROXIME AXETIL
     Dosage: 1 DOSAGE FORMS AT AN UNSPECIFIED FREQUENCY (DOSAGE FORM : NOT SPECIFIED)
     Route: 065
  373. CEFUROXIME AXETIL [Concomitant]
     Active Substance: CEFUROXIME AXETIL
     Dosage: 2 DOSAGE FORM 1 EVERY 24 HOURS
     Route: 065
  374. ACETAMINOPHEN\CODEINE PHOSPHATE [Concomitant]
     Active Substance: ACETAMINOPHEN\CODEINE PHOSPHATE
     Indication: Product used for unknown indication
     Dosage: UNK
     Route: 065
  375. ACETAMINOPHEN\CODEINE PHOSPHATE [Concomitant]
     Active Substance: ACETAMINOPHEN\CODEINE PHOSPHATE
     Dosage: 1 EVERY 1 DAY
     Route: 065
  376. ACETAMINOPHEN\CODEINE PHOSPHATE [Concomitant]
     Active Substance: ACETAMINOPHEN\CODEINE PHOSPHATE
     Dosage: AT AN UNSPECIFIED DOSE, 4 EVERY 1 DAYS
  377. ACETAMINOPHEN\CODEINE PHOSPHATE [Concomitant]
     Active Substance: ACETAMINOPHEN\CODEINE PHOSPHATE
     Dosage: 4.0 DOSAGE FORMS, 1 EVERY 24 HOURS
     Route: 065
  378. ELAVIL [Concomitant]
     Active Substance: AMITRIPTYLINE HYDROCHLORIDE
     Indication: Product used for unknown indication
     Dosage: 25 MILLIGRAMS
     Route: 065
  379. FLUOXETINE HYDROCHLORIDE [Concomitant]
     Active Substance: FLUOXETINE HYDROCHLORIDE
     Indication: Product used for unknown indication
     Dosage: 20 MILLIGRAMS
     Route: 065
  380. FLUOXETINE HYDROCHLORIDE [Concomitant]
     Active Substance: FLUOXETINE HYDROCHLORIDE
     Dosage: UNK
     Route: 065
  381. FROVATRIPTAN SUCCINATE [Concomitant]
     Active Substance: FROVATRIPTAN SUCCINATE
     Indication: Product used for unknown indication
     Dosage: 1 DOSAGE FORM 1 EVERY 1 DAY
     Route: 065
  382. FROVATRIPTAN SUCCINATE [Concomitant]
     Active Substance: FROVATRIPTAN SUCCINATE
     Dosage: 1 DOSAGE FORM
     Route: 065
  383. FROVATRIPTAN SUCCINATE [Concomitant]
     Active Substance: FROVATRIPTAN SUCCINATE
     Dosage: 1 DOSAGE FORM 1 EVERY 24 HOURS
     Route: 065
  384. MACROBID [Concomitant]
     Active Substance: NITROFURANTOIN\NITROFURANTOIN MONOHYDRATE
     Dosage: 1 DOSAGE FORM, 2 EVERY 1 DAY
     Route: 065
  385. PANTOPRAZOLE SODIUM [Concomitant]
     Active Substance: PANTOPRAZOLE SODIUM
     Indication: Product used for unknown indication
     Dosage: 1 DOSAGE FORM 2 EVERY 1 DAY
     Route: 065
  386. PANTOPRAZOLE SODIUM [Concomitant]
     Active Substance: PANTOPRAZOLE SODIUM
     Dosage: 1 DOSAGE FORM 1 EVERY 12 HOURS
     Route: 065
  387. PANTOPRAZOLE SODIUM [Concomitant]
     Active Substance: PANTOPRAZOLE SODIUM
     Dosage: 2 DOSAGE FORMS 1 EVERY 1 DAY
     Route: 065
  388. PANTOPRAZOLE SODIUM [Concomitant]
     Active Substance: PANTOPRAZOLE SODIUM
     Dosage: 1 DOSAGE FORM
     Route: 065
  389. ALBUTEROL [Concomitant]
     Active Substance: ALBUTEROL
     Indication: Product used for unknown indication
     Dosage: DOSAGE FORM: NOT SPECIFIED
     Route: 065
  390. ALBUTEROL [Concomitant]
     Active Substance: ALBUTEROL
     Dosage: UNK
     Route: 065
  391. SULFAMETHOXAZOLE\TRIMETHOPRIM [Concomitant]
     Active Substance: SULFAMETHOXAZOLE\TRIMETHOPRIM
     Indication: Product used for unknown indication
     Dosage: 100 MILLIGRAMS
     Route: 065
  392. SULFAMETHOXAZOLE\TRIMETHOPRIM [Concomitant]
     Active Substance: SULFAMETHOXAZOLE\TRIMETHOPRIM
     Dosage: 2 DOSAGE FORMS 1 EVERY 1 DAY
     Route: 065
  393. SULFAMETHOXAZOLE\TRIMETHOPRIM [Concomitant]
     Active Substance: SULFAMETHOXAZOLE\TRIMETHOPRIM
     Dosage: 2 DOSAGE FORMS 1 EVERY 1 DAY (DOSAGE FORM: NOT SPECIFIED)
     Route: 065
  394. SULFAMETHOXAZOLE\TRIMETHOPRIM [Concomitant]
     Active Substance: SULFAMETHOXAZOLE\TRIMETHOPRIM
     Dosage: 100 MILLIGRAMS (DOSAGE FORM: NOT SPECIFIED)
     Route: 065
  395. SULFAMETHOXAZOLE\TRIMETHOPRIM [Concomitant]
     Active Substance: SULFAMETHOXAZOLE\TRIMETHOPRIM
     Dosage: 2 DOSAGE FORM AT AN UNSPECIFIED FREQUENCY (DOSAGE FORM : NOT SPECIFIED)
     Route: 065
  396. SULFAMETHOXAZOLE\TRIMETHOPRIM [Concomitant]
     Active Substance: SULFAMETHOXAZOLE\TRIMETHOPRIM
     Dosage: 2 DOSAGE FORMS 1 EVERY 24 HOURS (DOSAGE FORMS : NOT SPECIFIED)
     Route: 065
  397. SULFAMETHOXAZOLE\TRIMETHOPRIM [Concomitant]
     Active Substance: SULFAMETHOXAZOLE\TRIMETHOPRIM
     Dosage: 1 DOSAGE FORMS 1 EVERY 24 HOURS
     Route: 065
  398. LISINOPRIL [Concomitant]
     Active Substance: LISINOPRIL
     Indication: Product used for unknown indication
     Dosage: 2 DOSAGE FORM 1 EVERY 1 DAY
     Route: 065
  399. LISINOPRIL [Concomitant]
     Active Substance: LISINOPRIL
     Dosage: 1 DOSAGE FORM 1 EVERY 1 DAY
     Route: 065
  400. LISINOPRIL [Concomitant]
     Active Substance: LISINOPRIL
     Dosage: 1 DOSAGE FORM
     Route: 065
  401. VENLAFAXINE [Concomitant]
     Active Substance: VENLAFAXINE HYDROCHLORIDE
     Indication: Product used for unknown indication
     Dosage: 150 MILLIGRAMS
     Route: 065
  402. ACETAMINOPHEN AND CODEINE [Concomitant]
     Active Substance: ACETAMINOPHEN\CODEINE PHOSPHATE
     Dosage: UNK
     Route: 065
  403. ACETAMINOPHEN\TRAMADOL HYDROCHLORIDE [Concomitant]
     Active Substance: ACETAMINOPHEN\TRAMADOL HYDROCHLORIDE
     Indication: Product used for unknown indication
     Dosage: AT AN UNSPECIFIED DOSE AND FREQUENCY
     Route: 065
  404. ACETAMINOPHEN\CODEINE PHOSPHATE [Concomitant]
     Active Substance: ACETAMINOPHEN\CODEINE PHOSPHATE
     Indication: Product used for unknown indication
     Dosage: 1 EVERY 1 DAY
     Route: 065
  405. DEXAMETHASONE [Concomitant]
     Active Substance: DEXAMETHASONE
     Indication: Product used for unknown indication
     Dosage: UNK
     Route: 065
  406. DEXAMETHASONE [Concomitant]
     Active Substance: DEXAMETHASONE
     Dosage: UNK
     Route: 065
  407. FLUTICASONE PROPIONATE [Concomitant]
     Active Substance: FLUTICASONE PROPIONATE
     Indication: Product used for unknown indication
     Dosage: 4 DOSAGE FORMS 1 EVERY 1 DAY
     Route: 065
  408. FLUTICASONE PROPIONATE [Concomitant]
     Active Substance: FLUTICASONE PROPIONATE
     Dosage: 2 DOSAGE FORMS 1 EVERY 1 DAY
     Route: 065
  409. FLUTICASONE PROPIONATE [Concomitant]
     Active Substance: FLUTICASONE PROPIONATE
     Dosage: 6 DOSAGE FORMS 1 EVERY 1 DAY
     Route: 065
  410. FLUTICASONE PROPIONATE [Concomitant]
     Active Substance: FLUTICASONE PROPIONATE
     Dosage: 2 DOSAGE FORMS
  411. FLUTICASONE PROPIONATE [Concomitant]
     Active Substance: FLUTICASONE PROPIONATE
     Dosage: 2 DOSAGE FORMS AT AN UNSPECIFIED FREQUENCY
     Route: 065
  412. ALBUTEROL SULFATE [Concomitant]
     Active Substance: ALBUTEROL SULFATE
     Indication: Product used for unknown indication
     Dosage: 4 DOSAGE FORMS 1 EVERY 1 DAY
     Route: 065
  413. ALBUTEROL SULFATE [Concomitant]
     Active Substance: ALBUTEROL SULFATE
     Dosage: 4 DOSAGE FORMS 1 EVERY 1 DAY
     Route: 065
  414. ALBUTEROL SULFATE [Concomitant]
     Active Substance: ALBUTEROL SULFATE
     Dosage: 1 DOSAGE FORMS
     Route: 065
  415. ALBUTEROL SULFATE [Concomitant]
     Active Substance: ALBUTEROL SULFATE
     Dosage: 1 DOSAGE FORMS 1 EVERY 1 DAY
     Route: 065
  416. ALBUTEROL SULFATE [Concomitant]
     Active Substance: ALBUTEROL SULFATE
     Dosage: UNK
     Route: 065
  417. ALLOPURINOL [Concomitant]
     Active Substance: ALLOPURINOL
     Indication: Product used for unknown indication
     Dosage: 25 MILLIGRAM AT AN UNSPECIFIED FREQUENCY
     Route: 065
  418. ALBUTEROL [Concomitant]
     Active Substance: ALBUTEROL
     Indication: Product used for unknown indication
     Dosage: AT AN UNSPECIFIED DOSE AND FREQUENCY
     Route: 065
  419. FLUOXETINE [Concomitant]
     Active Substance: FLUOXETINE HYDROCHLORIDE
     Route: 065
  420. ACETAMINOPHEN\CODEINE PHOSPHATE [Concomitant]
     Active Substance: ACETAMINOPHEN\CODEINE PHOSPHATE
     Route: 065
  421. AMOXICILLIN\CLARITHROMYCIN\ESOMEPRAZOLE [Concomitant]
     Active Substance: AMOXICILLIN\CLARITHROMYCIN\ESOMEPRAZOLE
     Route: 065
  422. CODEINE PHOSPHATE [Concomitant]
     Active Substance: CODEINE PHOSPHATE
     Dosage: (DOSAGE FORM : NOT SPECIFIED)
     Route: 065
  423. FLUOXETINE [Concomitant]
     Active Substance: FLUOXETINE HYDROCHLORIDE
     Route: 065
  424. PREDNISONE [Concomitant]
     Active Substance: PREDNISONE
     Dosage: (DOSAGE FORM : NOT SPECIFIED)
     Route: 065
  425. ACECLOFENAC;TRAMADOL HYDROCHLORIDE [Concomitant]
     Indication: Product used for unknown indication
     Dosage: AT AN UNSPECIFIED DOSE 4 EVERY 1 DAYS
     Route: 065
  426. AMOXICILLIN TRIHYDRATE [Concomitant]
     Active Substance: AMOXICILLIN
     Indication: Product used for unknown indication
     Dosage: 2 DOSAGE FORM 3 EVERY 1 DAYS
     Route: 065
  427. SIMVASTATIN [Concomitant]
     Active Substance: SIMVASTATIN
     Indication: Product used for unknown indication
     Route: 065
  428. ACETAMINOPHEN\CODEINE PHOSPHATE [Concomitant]
     Active Substance: ACETAMINOPHEN\CODEINE PHOSPHATE
     Indication: Product used for unknown indication
     Route: 065
  429. ACETAMINOPHEN\CODEINE PHOSPHATE [Concomitant]
     Active Substance: ACETAMINOPHEN\CODEINE PHOSPHATE
     Dosage: AT UNSPECIFIED DOSE 4 EVERY 1 DAYS
     Route: 065
  430. ACETAMINOPHEN\CODEINE PHOSPHATE [Concomitant]
     Active Substance: ACETAMINOPHEN\CODEINE PHOSPHATE
     Dosage: 4 DOSAGE FORM 1 EVERY 24 HOURS
     Route: 065

REACTIONS (11)
  - Drug ineffective [Recovered/Resolved]
  - Drug ineffective for unapproved indication [Recovered/Resolved]
  - Drug intolerance [Recovered/Resolved]
  - Dysphonia [Recovered/Resolved]
  - Off label use [Recovered/Resolved]
  - Swollen tongue [Recovered/Resolved]
  - Product use in unapproved indication [Recovered/Resolved]
  - Swelling face [Recovered/Resolved]
  - Angioedema [Recovered/Resolved]
  - Headache [Recovered/Resolved]
  - Hypersensitivity [Recovered/Resolved]
